FAERS Safety Report 5274294-7 (Version None)
Quarter: 2007Q1

REPORT INFORMATION
  Report Type: 
  Country: None (occurrence: None)
  Receive Date: 20070323
  Receipt Date: 20070315
  Transmission Date: 20070707
  Serious: Yes (Hospitalization, Other)
  Sender: FDA-Public Use
  Company Number: CA-JNJFOC-20070201943

PATIENT
  Sex: Male
  Weight: 77.11 kg

DRUGS (3)
  1. REMINYL ER [Suspect]
     Indication: DEMENTIA ALZHEIMER'S TYPE
     Route: 048
  2. MODURET [Concomitant]
     Indication: HYPERTENSION
  3. FOSINOPRIL SODIUM [Concomitant]
     Indication: HYPERTENSION

REACTIONS (5)
  - DEHYDRATION [None]
  - DIARRHOEA [None]
  - GASTROENTERITIS [None]
  - RENAL FAILURE ACUTE [None]
  - VOMITING [None]
